FAERS Safety Report 4467319-X (Version None)
Quarter: 2004Q4

REPORT INFORMATION
  Report Type: 
  Country: None (occurrence: None)
  Receive Date: 20041004
  Receipt Date: 20040922
  Transmission Date: 20050328
  Serious: Yes (Other)
  Sender: FDA-Public Use
  Company Number: 2004235375US

PATIENT
  Sex: Female

DRUGS (4)
  1. PROVERA [Suspect]
  2. PREMPRO [Suspect]
  3. PREMPHASE 14/14 [Suspect]
  4. PREMARIN [Suspect]

REACTIONS (1)
  - BREAST CANCER FEMALE [None]
